FAERS Safety Report 7367449-9 (Version None)
Quarter: 2011Q1

REPORT INFORMATION
  Report Type: 
  Country: None (occurrence: None)
  Receive Date: 20110322
  Receipt Date: 20110314
  Transmission Date: 20110831
  Serious: Yes (Other)
  Sender: FDA-Public Use
  Company Number: US-CEPHALON-2011001186

PATIENT
  Sex: Female
  Weight: 79 kg

DRUGS (14)
  1. NUVIGIL [Suspect]
     Indication: FATIGUE
     Route: 048
     Dates: start: 20090801, end: 20100901
  2. MOBIC [Concomitant]
     Dates: start: 20100301, end: 20100901
  3. VALIUM [Concomitant]
     Dates: start: 20100601, end: 20101001
  4. BETASERON [Concomitant]
     Dates: start: 19990501, end: 20100701
  5. HYDROCODONE BITARTRATE [Concomitant]
     Dates: start: 19990101
  6. PRILOSEC [Concomitant]
     Dates: start: 20090101
  7. ZANAFLEX [Concomitant]
     Dates: start: 20091201
  8. BACTRIM [Concomitant]
     Dates: start: 19990101
  9. SOMA [Concomitant]
     Dates: start: 20090801
  10. SEROQUEL [Concomitant]
     Dates: start: 20040101, end: 20090101
  11. NEURONTIN [Concomitant]
     Dates: start: 20090101
  12. NUVIGIL [Suspect]
     Route: 048
     Dates: start: 20090901, end: 20100601
  13. REGLAN [Concomitant]
     Dates: start: 20040101, end: 20091201
  14. VALCYCLOR [Concomitant]
     Dates: start: 20091201

REACTIONS (10)
  - ANGER [None]
  - RASH [None]
  - SKIN EXFOLIATION [None]
  - MOOD SWINGS [None]
  - SKIN DISCOLOURATION [None]
  - SWELLING FACE [None]
  - EYE SWELLING [None]
  - IMPULSIVE BEHAVIOUR [None]
  - INSOMNIA [None]
  - SKIN INFECTION [None]
